FAERS Safety Report 14261444 (Version 1)
Quarter: 2017Q4

REPORT INFORMATION
  Report Type: Spontaneous
  Country: US (occurrence: None)
  Receive Date: 20171207
  Receipt Date: 20171207
  Transmission Date: 20180321
  Serious: No
  Sender: FDA-Public Use
  Company Number: None

PATIENT
  Age: 54 Year
  Sex: Female
  Weight: 97.98 kg

DRUGS (10)
  1. D-3 [Concomitant]
     Active Substance: CHOLECALCIFEROL
  2. ASPIRIN. [Concomitant]
     Active Substance: ASPIRIN
  3. FISH OIL [Concomitant]
     Active Substance: FISH OIL
  4. RHODIOLA ROSAE [Concomitant]
  5. PARAGARD T 380A [Suspect]
     Active Substance: COPPER
     Dates: start: 20080414, end: 20171115
  6. PRAVASTATIN. [Concomitant]
     Active Substance: PRAVASTATIN
  7. GLUCOSAMINE WITH CHONDROITIN [Concomitant]
  8. SPIRONOLACTONE. [Concomitant]
     Active Substance: SPIRONOLACTONE
  9. UBIQUINOL COQ10 [Concomitant]
  10. B100 COMPLEX [Concomitant]
     Active Substance: MINERALS\VITAMINS

REACTIONS (2)
  - Embedded device [None]
  - Device dislocation [None]

NARRATIVE: CASE EVENT DATE: 20171115
